FAERS Safety Report 18640107 (Version 1)
Quarter: 2020Q4

REPORT INFORMATION
  Report Type: Spontaneous
  Country: AU (occurrence: AU)
  Receive Date: 20201220
  Receipt Date: 20201220
  Transmission Date: 20210114
  Serious: No
  Sender: FDA-Public Use
  Company Number: AU-JNJFOC-20201204282

PATIENT
  Sex: Female

DRUGS (2)
  1. SIMPONI [Suspect]
     Active Substance: GOLIMUMAB
     Indication: PRODUCT USED FOR UNKNOWN INDICATION
     Dosage: 50.00 MG / 0.50 ML
     Route: 058
     Dates: start: 20171221
  2. SIMPONI [Suspect]
     Active Substance: GOLIMUMAB

REACTIONS (2)
  - Product dose omission issue [Unknown]
  - Needle issue [Unknown]
